FAERS Safety Report 5800001-2 (Version None)
Quarter: 2008Q3

REPORT INFORMATION
  Report Type: 
  Country: None (occurrence: None)
  Receive Date: 20080703
  Receipt Date: 20080625
  Transmission Date: 20090109
  Serious: Yes (Hospitalization)
  Sender: FDA-Public Use
  Company Number: US-AMGEN-QUU290253

PATIENT
  Sex: Female

DRUGS (2)
  1. ENBREL [Suspect]
     Indication: DRUG USE FOR UNKNOWN INDICATION
     Route: 058
  2. CYCLOSPORINE [Concomitant]

REACTIONS (5)
  - BLINDNESS [None]
  - DIARRHOEA [None]
  - HEADACHE [None]
  - MENINGITIS ASEPTIC [None]
  - NAUSEA [None]
